FAERS Safety Report 11346827 (Version 1)
Quarter: 2015Q3

REPORT INFORMATION
  Report Type: Spontaneous
  Country: US (occurrence: US)
  Receive Date: 20150803
  Receipt Date: 20150803
  Transmission Date: 20151125
  Serious: No
  Sender: FDA-Public Use
  Company Number: US-ELI_LILLY_AND_COMPANY-US201009004672

PATIENT
  Age: 57 Year
  Sex: Female

DRUGS (6)
  1. ZYPREXA [Suspect]
     Active Substance: OLANZAPINE
     Dosage: 5 MG, DAILY (1/D)
     Dates: start: 201008
  2. HYDROXYZINE [Concomitant]
     Active Substance: HYDROXYZINE\HYDROXYZINE HYDROCHLORIDE
  3. TYLENOL [Concomitant]
     Active Substance: ACETAMINOPHEN
  4. ZYPREXA [Suspect]
     Active Substance: OLANZAPINE
     Dosage: 7.5 MG, DAILY (1/D)
  5. ZYPREXA [Suspect]
     Active Substance: OLANZAPINE
     Indication: BIPOLAR I DISORDER
     Dosage: 2.5 MG, DAILY (1/D)
     Dates: start: 2007, end: 201008
  6. ZYPREXA [Suspect]
     Active Substance: OLANZAPINE
     Dosage: 5 MG, DAILY (1/D)

REACTIONS (24)
  - Visual impairment [Not Recovered/Not Resolved]
  - Pain in extremity [Unknown]
  - Psychotic disorder [Unknown]
  - Hallucination, auditory [Unknown]
  - Hallucination, tactile [Unknown]
  - Headache [Unknown]
  - Blepharospasm [Unknown]
  - Drug intolerance [Unknown]
  - Drug hypersensitivity [Unknown]
  - Nervous system disorder [Unknown]
  - Extra dose administered [Unknown]
  - Weight increased [Unknown]
  - Illusion [Not Recovered/Not Resolved]
  - Nervousness [Unknown]
  - Hallucination [Unknown]
  - Hearing impaired [Not Recovered/Not Resolved]
  - Drug dependence [Unknown]
  - Tardive dyskinesia [Unknown]
  - Head discomfort [Not Recovered/Not Resolved]
  - Headache [Not Recovered/Not Resolved]
  - Osteoarthritis [Unknown]
  - Feeling abnormal [Unknown]
  - Migraine [Unknown]
  - Mood altered [Unknown]

NARRATIVE: CASE EVENT DATE: 201003
